FAERS Safety Report 11778372 (Version 1)
Quarter: 2015Q4

REPORT INFORMATION
  Report Type: Spontaneous
  Country: US (occurrence: US)
  Receive Date: 20151125
  Receipt Date: 20151125
  Transmission Date: 20160304
  Serious: Yes (Other)
  Sender: FDA-Public Use
  Company Number: US-PURDUE-USA-2015-0127604

PATIENT
  Sex: Male

DRUGS (2)
  1. COLACE [Suspect]
     Active Substance: DOCUSATE SODIUM
     Indication: PRODUCT USED FOR UNKNOWN INDICATION
     Dosage: 2 DF, SINGLE
     Route: 048
  2. COLACE [Suspect]
     Active Substance: DOCUSATE SODIUM
     Dosage: 1 DF, SINGLE
     Route: 048

REACTIONS (1)
  - Visual acuity reduced [Unknown]
